FAERS Safety Report 5265015-2 (Version None)
Quarter: 2007Q1

REPORT INFORMATION
  Report Type: 
  Country: None (occurrence: None)
  Receive Date: 20061122
  Receipt Date: 20060811
  Transmission Date: 20070707
  Serious: Yes (Other)
  Sender: FDA-Public Use
  Company Number: US-JNJFOC-20060705501

PATIENT
  Age: 43 Year
  Sex: Male

DRUGS (2)
  1. RISPERDAL [Suspect]
     Indication: DRUG USE FOR UNKNOWN INDICATION
     Dosage: 50 MG INTRAMUSCULAR
     Route: 030
     Dates: start: 20041001
  2. COGENTIN [Concomitant]

REACTIONS (1)
  - TARDIVE DYSKINESIA [None]
